FAERS Safety Report 18585972 (Version 1)
Quarter: 2020Q4

REPORT INFORMATION
  Report Type: Spontaneous
  Country: US (occurrence: US)
  Receive Date: 20201203
  Receipt Date: 20201203
  Transmission Date: 20210114
  Serious: Yes (Hospitalization)
  Sender: FDA-Public Use
  Company Number: None

PATIENT
  Age: 23 Year
  Sex: Female
  Weight: 123.7 kg

DRUGS (2)
  1. TRI-SPRINTEC [Concomitant]
     Active Substance: ETHINYL ESTRADIOL\NORGESTIMATE
     Dates: start: 20190920
  2. CLOTRIMAZOLE ANTIFUNGAL [Suspect]
     Active Substance: CLOTRIMAZOLE
     Indication: VULVOVAGINAL CANDIDIASIS
     Route: 067

REACTIONS (4)
  - Pruritus [None]
  - Dyspnoea [None]
  - Discomfort [None]
  - Swelling [None]

NARRATIVE: CASE EVENT DATE: 20200714
